FAERS Safety Report 7450714-4 (Version None)
Quarter: 2011Q2

REPORT INFORMATION
  Report Type: 
  Country: None (occurrence: None)
  Receive Date: 20110429
  Receipt Date: 20110429
  Transmission Date: 20111010
  Serious: No
  Sender: FDA-Public Use
  Company Number: None

PATIENT
  Sex: Female
  Weight: 50.8029 kg

DRUGS (1)
  1. FEXOFENADINE [Suspect]
     Dosage: 180MG DAILY ORAL 047
     Route: 048

REACTIONS (1)
  - PRODUCT SUBSTITUTION ISSUE [None]
